FAERS Safety Report 8341124-6 (Version None)
Quarter: 2012Q2

REPORT INFORMATION
  Report Type: 
  Country: None (occurrence: None)
  Receive Date: 20120507
  Receipt Date: 20101116
  Transmission Date: 20120825
  Serious: Yes (Life-Threatening, Hospitalization)
  Sender: FDA-Public Use
  Company Number: DK-GLAXOSMITHKLINE-B0799577A

PATIENT
  Sex: Male

DRUGS (1)
  1. ACITRETIN [Suspect]
     Indication: PSORIASIS
     Route: 048
     Dates: start: 20100501

REACTIONS (8)
  - URTICARIA [None]
  - ABDOMINAL PAIN [None]
  - HAEMATOCHEZIA [None]
  - COLITIS ULCERATIVE [None]
  - DIARRHOEA HAEMORRHAGIC [None]
  - ILEOSTOMY [None]
  - COLECTOMY [None]
  - PROCTOSTOMY [None]
